FAERS Safety Report 6414799-6 (Version None)
Quarter: 2009Q4

REPORT INFORMATION
  Report Type: 
  Country: None (occurrence: None)
  Receive Date: 20091026
  Receipt Date: 20091026
  Transmission Date: 20100525
  Serious: Yes (Hospitalization)
  Sender: FDA-Public Use
  Company Number: None

PATIENT
  Age: 52 Year
  Sex: Male
  Weight: 63.5036 kg

DRUGS (1)
  1. NAPROXEN [Suspect]
     Indication: BACK PAIN
     Dosage: 500MG 2 TIMES/DAY PO
     Route: 048
     Dates: start: 20090806, end: 20090809

REACTIONS (3)
  - BLOOD BILIRUBIN INCREASED [None]
  - CHROMATURIA [None]
  - HAEMOPTYSIS [None]
